FAERS Safety Report 25930694 (Version 1)
Quarter: 2025Q4

REPORT INFORMATION
  Report Type: Report from Study
  Country: US (occurrence: US)
  Receive Date: 20251016
  Receipt Date: 20251016
  Transmission Date: 20260119
  Serious: No
  Sender: BIOVITRUM
  Company Number: US-BIOVITRUM-2025-US-013847

PATIENT
  Age: 80 Year
  Sex: Female

DRUGS (1)
  1. DOPTELET [Suspect]
     Active Substance: AVATROMBOPAG MALEATE
     Indication: Immune thrombocytopenia
     Dosage: 1 TIME A DAY
     Route: 048
     Dates: start: 202502

REACTIONS (2)
  - Headache [Unknown]
  - Blood pressure increased [Unknown]
